FAERS Safety Report 6635510-X (Version None)
Quarter: 2010Q1

REPORT INFORMATION
  Report Type: 
  Country: None (occurrence: None)
  Receive Date: 20100315
  Receipt Date: 20091202
  Transmission Date: 20100710
  Serious: No
  Sender: FDA-Public Use
  Company Number: US-ABBOTT-09P-163-0612887-00

PATIENT
  Sex: Male

DRUGS (4)
  1. DEPAKOTE [Suspect]
     Indication: BIPOLAR I DISORDER
  2. DEPAKOTE [Suspect]
     Indication: BIPOLAR DISORDER
     Dates: start: 20090401, end: 20090601
  3. DEPAKOTE [Suspect]
     Indication: SCHIZOPHRENIA
  4. DEPAKOTE [Suspect]
     Indication: DEPRESSION

REACTIONS (3)
  - BLOOD GLUCOSE INCREASED [None]
  - OEDEMA [None]
  - WEIGHT INCREASED [None]
